FAERS Safety Report 12388250 (Version 2)
Quarter: 2019Q2

REPORT INFORMATION
  Report Type: Spontaneous
  Country: JP (occurrence: JP)
  Receive Date: 20160520
  Receipt Date: 20190513
  Transmission Date: 20190711
  Serious: Yes (Other)
  Sender: FDA-Public Use
  Company Number: JP-SA-2016SA097454

PATIENT
  Sex: Male

DRUGS (1)
  1. RENAGEL [Suspect]
     Active Substance: SEVELAMER HYDROCHLORIDE
     Dosage: UNK UNK,UNK
     Route: 048

REACTIONS (6)
  - Large intestinal ulcer [Unknown]
  - Endoscopy gastrointestinal abnormal [Unknown]
  - Crystal deposit intestine [Unknown]
  - Rectal ulcer [Unknown]
  - Diarrhoea [Unknown]
  - Inflammation [Unknown]
